FAERS Safety Report 8049364-0 (Version None)
Quarter: 2012Q1

REPORT INFORMATION
  Report Type: 
  Country: None (occurrence: None)
  Receive Date: 20120117
  Receipt Date: 20120111
  Transmission Date: 20120608
  Serious: Yes (Other)
  Sender: FDA-Public Use
  Company Number: US-PFIZER INC-2011301628

PATIENT
  Sex: Female
  Weight: 68.027 kg

DRUGS (9)
  1. HYDROXYZINE [Concomitant]
     Dosage: UNK
  2. LISINOPRIL [Concomitant]
     Indication: HYPERTENSION
     Dosage: UNK
  3. GABAPENTIN [Concomitant]
     Dosage: UNK
  4. LEXAPRO [Concomitant]
     Dosage: UNK
  5. CHANTIX [Suspect]
     Dosage: 1 MG, 2X/DAY
     Dates: start: 20111101, end: 20111101
  6. CHANTIX [Suspect]
     Dosage: 1 MG, 1X/DAY
     Dates: start: 20111101, end: 20111101
  7. LORTAB [Concomitant]
     Dosage: UNK
  8. CHANTIX [Suspect]
     Indication: SMOKING CESSATION THERAPY
     Dosage: 0.5 MG, 1X/DAY
     Dates: start: 20111101, end: 20111101
  9. TRAMADOL [Concomitant]
     Dosage: UNK

REACTIONS (8)
  - DISORIENTATION [None]
  - FALL [None]
  - LIMB INJURY [None]
  - FEELING ABNORMAL [None]
  - ABNORMAL DREAMS [None]
  - FEELING JITTERY [None]
  - CONTUSION [None]
  - PARANOIA [None]
